FAERS Safety Report 4887682-5 (Version None)
Quarter: 2006Q1

REPORT INFORMATION
  Report Type: 
  Country: None (occurrence: None)
  Receive Date: 20060119
  Receipt Date: 20060119
  Transmission Date: 20060701
  Serious: Yes (Hospitalization)
  Sender: FDA-Public Use
  Company Number: None

PATIENT
  Age: 86 Year
  Sex: Female
  Weight: 50.8029 kg

DRUGS (1)
  1. APAP 500 MG/ HYDROCODONE 7.5 MG TABLETS [Suspect]
     Indication: OSTEOARTHRITIS
     Dosage: 1 TAB Q 4 HRS PRN PAIN (PO)
     Route: 048
     Dates: start: 20051121, end: 20051203

REACTIONS (3)
  - BACK PAIN [None]
  - CONSTIPATION [None]
  - PAIN [None]
